FAERS Safety Report 10154771 (Version 1)
Quarter: 2014Q2

REPORT INFORMATION
  Report Type: Spontaneous
  Country: US (occurrence: None)
  Receive Date: 20140502
  Receipt Date: 20140502
  Transmission Date: 20141212
  Serious: No
  Sender: FDA-Public Use
  Company Number: B0990209A

PATIENT
  Age: 19 Year
  Sex: Female

DRUGS (2)
  1. ONDANSETRON HYDROCHLORIDE [Suspect]
     Indication: NAUSEA
     Route: 042
  2. BETA-BLOCKER [Concomitant]

REACTIONS (9)
  - Long QT syndrome [None]
  - Blood pressure increased [None]
  - Heart rate increased [None]
  - Blood potassium decreased [None]
  - Convulsion [None]
  - Torsade de pointes [None]
  - Pregnancy [None]
  - Blood magnesium decreased [None]
  - Maternal exposure before pregnancy [None]
